FAERS Safety Report 9800939 (Version 2)
Quarter: 2014Q1

REPORT INFORMATION
  Report Type: Report from Study
  Country: CA (occurrence: CA)
  Receive Date: 20140107
  Receipt Date: 20140107
  Transmission Date: 20141002
  Serious: Yes (Hospitalization)
  Sender: FDA-Public Use
  Company Number: CA-JNJFOC-20131114395

PATIENT
  Age: 23 Year
  Sex: Male
  Weight: 127.3 kg

DRUGS (4)
  1. REMICADE [Suspect]
     Indication: COLITIS ULCERATIVE
     Route: 042
     Dates: start: 20101118
  2. IMURAN [Concomitant]
     Route: 048
  3. DICETEL [Concomitant]
     Route: 065
  4. IMODIUM [Concomitant]
     Route: 065

REACTIONS (1)
  - Tonsillectomy [Recovered/Resolved]
